FAERS Safety Report 4874404-7 (Version None)
Quarter: 2005Q4

REPORT INFORMATION
  Report Type: 
  Country: None (occurrence: None)
  Receive Date: 20051201
  Receipt Date: 20050809
  Transmission Date: 20060501
  Serious: No
  Sender: FDA-Public Use
  Company Number: 2005PV001045

PATIENT
  Age: 66 Year
  Sex: Female
  Weight: 81.6475 kg

DRUGS (10)
  1. BYETTA [Suspect]
     Indication: DIABETES MELLITUS NON-INSULIN-DEPENDENT
     Dosage: 5 MCG;BID;SC
     Route: 058
     Dates: start: 20050803
  2. METFORMIN HYDROCHLORIDE [Concomitant]
  3. INDERAL LA [Concomitant]
  4. CELEBREX [Concomitant]
  5. HYDROCHLOROTHIAZIDE [Concomitant]
  6. MICRO-K [Concomitant]
  7. AVANDIA [Concomitant]
  8. ALTACE [Concomitant]
  9. CALCIUM GLUCONATE [Concomitant]
  10. GREEN TEA CONCENTRATE [Concomitant]

REACTIONS (6)
  - DECREASED APPETITE [None]
  - ERUCTATION [None]
  - GASTROOESOPHAGEAL REFLUX DISEASE [None]
  - INSOMNIA [None]
  - NAUSEA [None]
  - SLEEP DISORDER [None]
